FAERS Safety Report 4317112-3 (Version None)
Quarter: 2004Q1

REPORT INFORMATION
  Report Type: 
  Country: None (occurrence: None)
  Receive Date: 20040312
  Receipt Date: 20040225
  Transmission Date: 20041129
  Serious: Yes (Death)
  Sender: FDA-Public Use
  Company Number: 2004IM000290

PATIENT
  Age: 40 Year
  Sex: Male

DRUGS (3)
  1. ADVAFERON (A643_INTERFERON ALFACON-1) [Suspect]
     Indication: HEPATITIS C
     Dosage: 12 MU; QOD; SUBCUTANEOUS
     Route: 058
     Dates: start: 20030423, end: 20031001
  2. FENOFIBRATE [Concomitant]
  3. ALLOPURINOL [Concomitant]

REACTIONS (3)
  - ARTHRALGIA [None]
  - COMPLETED SUICIDE [None]
  - MALAISE [None]
